FAERS Safety Report 18961197 (Version 1)
Quarter: 2021Q1

REPORT INFORMATION
  Report Type: Other
  Country: NO (occurrence: NO)
  Receive Date: 20210302
  Receipt Date: 20210302
  Transmission Date: 20210420
  Serious: Yes (Hospitalization, Other)
  Sender: FDA-Public Use
  Company Number: NO-ROCHE-2775888

PATIENT

DRUGS (4)
  1. RITUXIMAB. [Suspect]
     Active Substance: RITUXIMAB
     Indication: MULTIPLE SCLEROSIS
     Dosage: 1000 MG AT 0 DAYS, 500 MG EVERY 6MONTHS (PATIENTS INITIATING TREATMENT BETWEEN 01/JAN/2015 AND 31/ D
     Route: 041
  2. METHYLPREDNISOLONE. [Suspect]
     Active Substance: METHYLPREDNISOLONE
     Indication: PREMEDICATION
     Dosage: APPROXIMATELY 30 MINUTES PRIOR TO EACH INFUSION
     Route: 042
  3. PARACETAMOL [Concomitant]
     Active Substance: ACETAMINOPHEN
     Indication: PREMEDICATION
     Dosage: APPROXIMATELY 30?60 MINUTES PRIOR TO EACH INFUSION
     Route: 048
  4. CETIRIZINE [Concomitant]
     Active Substance: CETIRIZINE HYDROCHLORIDE
     Indication: PREMEDICATION
     Dosage: APPROXIMATELY 30?60 MINUTES PRIOR TO EACH INFUSION
     Route: 048

REACTIONS (24)
  - Fungal infection [Unknown]
  - Urosepsis [Unknown]
  - Enteritis [Unknown]
  - Infection [Unknown]
  - Off label use [Unknown]
  - Pneumonia [Unknown]
  - Cholecystitis [Unknown]
  - Hypogammaglobulinaemia [Unknown]
  - Rash [Recovered/Resolved]
  - Tinnitus [Unknown]
  - Malignant melanoma [Unknown]
  - Febrile neutropenia [Unknown]
  - Dyspnoea [Recovered/Resolved]
  - Proctitis [Unknown]
  - Facial paresis [Recovered/Resolved]
  - Intentional product use issue [Unknown]
  - Colon cancer [Unknown]
  - Ventricular extrasystoles [Unknown]
  - Sinusitis [Unknown]
  - Intervertebral discitis [Unknown]
  - Infusion related reaction [Unknown]
  - Neutropenia [Recovered/Resolved]
  - Diverticulitis [Unknown]
  - Zoonosis [Unknown]
